FAERS Safety Report 14513066 (Version 11)
Quarter: 2018Q4

REPORT INFORMATION
  Report Type: Report from Study
  Country: CZ (occurrence: CZ)
  Receive Date: 20180209
  Receipt Date: 20181114
  Transmission Date: 20190204
  Serious: Yes (Death, Hospitalization)
  Sender: FDA-Public Use
  Company Number: CZ-EISAI MEDICAL RESEARCH-EC-2018-035918

PATIENT
  Age: 51 Year
  Sex: Male
  Weight: 57 kg

DRUGS (25)
  1. TORECAN [Concomitant]
     Active Substance: THIETHYLPERAZINE MALATE
  2. LENVATINIB [Suspect]
     Active Substance: LENVATINIB
     Route: 048
     Dates: start: 20180719, end: 20180921
  3. CONTROLOG [Concomitant]
  4. DEGAN [Concomitant]
     Active Substance: METOCLOPRAMIDE HYDROCHLORIDE
  5. YAL [Concomitant]
  6. LENVATINIB [Suspect]
     Active Substance: LENVATINIB
     Indication: RENAL CELL CARCINOMA
     Route: 048
     Dates: start: 20180201, end: 20180322
  7. CEZERA [Concomitant]
  8. DOLFORIN [Concomitant]
     Active Substance: FENTANYL
  9. CAPHOSOL [Concomitant]
     Active Substance: CALCIUM CHLORIDE\SODIUM CHLORIDE\SODIUM PHOSPHATE, DIBASIC, ANHYDROUS\SODIUM PHOSPHATE, MONOBASIC, ANHYDROUS
  10. NUTRIDRINK [Concomitant]
     Active Substance: CARBOHYDRATES\FATTY ACIDS\MINERALS\PROTEIN\VITAMINS
  11. FENTALIS [Concomitant]
     Active Substance: FENTANYL
  12. EVEROLIMUS. [Suspect]
     Active Substance: EVEROLIMUS
     Indication: RENAL CELL CARCINOMA
     Route: 048
     Dates: start: 20180201, end: 20180322
  13. NOVALGIN (METAMIZOLE SODIUM) [Concomitant]
     Active Substance: METAMIZOLE SODIUM
  14. NEURONTIN [Concomitant]
     Active Substance: GABAPENTIN
  15. EUTHYROX [Concomitant]
     Active Substance: LEVOTHYROXINE SODIUM
  16. TULIP [Concomitant]
  17. ZOMETA [Concomitant]
     Active Substance: ZOLEDRONIC ACID
  18. EVEROLIMUS. [Suspect]
     Active Substance: EVEROLIMUS
     Route: 048
     Dates: start: 20180719, end: 20180921
  19. LACTULOSE. [Concomitant]
     Active Substance: LACTULOSE
  20. ERDOMED [Concomitant]
     Active Substance: ERDOSTEINE
  21. CALCICHEW [Concomitant]
     Active Substance: CALCIUM CARBONATE
  22. LENVATINIB [Suspect]
     Active Substance: LENVATINIB
     Route: 048
     Dates: start: 20180329, end: 20180529
  23. EVEROLIMUS. [Suspect]
     Active Substance: EVEROLIMUS
     Route: 048
     Dates: start: 20180329, end: 20180529
  24. XARELTO [Concomitant]
     Active Substance: RIVAROXABAN
  25. WARFARIN [Concomitant]
     Active Substance: WARFARIN

REACTIONS (3)
  - Vomiting [Recovered/Resolved]
  - Pneumonia [Fatal]
  - Osteonecrosis of jaw [Recovered/Resolved]

NARRATIVE: CASE EVENT DATE: 20180202
